FAERS Safety Report 17798107 (Version 1)
Quarter: 2020Q2

REPORT INFORMATION
  Report Type: Spontaneous
  Country: US (occurrence: US)
  Receive Date: 20200518
  Receipt Date: 20200518
  Transmission Date: 20200714
  Serious: No
  Sender: FDA-Public Use
  Company Number: US-HORIZON-KRY-0666-2020

PATIENT
  Age: 89 Year
  Sex: Female
  Weight: 62.17 kg

DRUGS (4)
  1. LEFLUNOMIDE. [Concomitant]
     Active Substance: LEFLUNOMIDE
     Dosage: 10 MG FOR 7 DAYS THEN INCREASED TO FULL 20 MG TABLET
     Route: 048
     Dates: start: 20191105
  2. BENADRYL [Concomitant]
     Active Substance: DIPHENHYDRAMINE HYDROCHLORIDE
  3. MEDROL [Concomitant]
     Active Substance: METHYLPREDNISOLONE
     Dosage: 16MG/DAILY
     Route: 048
  4. KRYSTEXXA [Suspect]
     Active Substance: PEGLOTICASE
     Indication: PRODUCT USED FOR UNKNOWN INDICATION
     Dates: start: 20191219

REACTIONS (4)
  - Gout [Unknown]
  - Gout [Unknown]
  - Gout [Unknown]
  - Gout [Unknown]

NARRATIVE: CASE EVENT DATE: 2019
